FAERS Safety Report 9147109 (Version 1)
Quarter: 2013Q1

REPORT INFORMATION
  Report Type: Spontaneous
  Country: US (occurrence: None)
  Receive Date: 20130204
  Receipt Date: 20130204
  Transmission Date: 20140127
  Serious: Yes (Death)
  Sender: FDA-Public Use
  Company Number: NSR_00978_2013

PATIENT
  Age: 37 Year
  Sex: Male

DRUGS (3)
  1. TRAMADOL [Suspect]
     Indication: PRODUCT USED FOR UNKNOWN INDICATION
     Dosage: DF
     Route: 051
  2. 3,4-METHYLENEDIOXYPYROVALERONE [Suspect]
     Dosage: DF
     Route: 051
  3. CAFFEINE [Suspect]
     Dosage: DF
     Route: 051

REACTIONS (4)
  - Respiratory arrest [None]
  - Poisoning [None]
  - Cardiac arrest [None]
  - Drug abuse [None]
